FAERS Safety Report 19306849 (Version 6)
Quarter: 2025Q3

REPORT INFORMATION
  Report Type: Report from Study
  Country: US (occurrence: US)
  Receive Date: 20210526
  Receipt Date: 20250902
  Transmission Date: 20251021
  Serious: Yes (Other)
  Sender: TAKEDA
  Company Number: US-TAKEDA-US201833631

PATIENT
  Sex: Female

DRUGS (2)
  1. HUMAN IMMUNOGLOBULIN G [Suspect]
     Active Substance: HUMAN IMMUNOGLOBULIN G
     Indication: Immunodeficiency common variable
  2. HUMAN IMMUNOGLOBULIN G [Suspect]
     Active Substance: HUMAN IMMUNOGLOBULIN G
     Indication: Primary immunodeficiency syndrome

REACTIONS (10)
  - Pneumonia [Unknown]
  - Immune thrombocytopenia [Unknown]
  - Nasopharyngitis [Recovering/Resolving]
  - COVID-19 [Unknown]
  - Fall [Recovering/Resolving]
  - Platelet count decreased [Not Recovered/Not Resolved]
  - Vertigo [Recovering/Resolving]
  - Fatigue [Unknown]
  - Multiple allergies [Recovering/Resolving]
  - Illness [Recovering/Resolving]
